FAERS Safety Report 15449384 (Version 2)
Quarter: 2018Q4

REPORT INFORMATION
  Report Type: Spontaneous
  Country: PT (occurrence: PT)
  Receive Date: 20181001
  Receipt Date: 20181005
  Transmission Date: 20190204
  Serious: Yes (Other)
  Sender: FDA-Public Use
  Company Number: PT-TEVA-2018-PT-959115

PATIENT
  Age: 80 Year
  Sex: Female

DRUGS (8)
  1. ROSUVASTATIN. [Concomitant]
     Active Substance: ROSUVASTATIN
  2. ALLOPURINOL. [Suspect]
     Active Substance: ALLOPURINOL
     Route: 065
  3. ROSUVASTATIN. [Concomitant]
     Active Substance: ROSUVASTATIN
  4. IRBESARTAN. [Concomitant]
     Active Substance: IRBESARTAN
  5. BROMAZEPAM [Concomitant]
     Active Substance: BROMAZEPAM
  6. INDAPAMIDE. [Concomitant]
     Active Substance: INDAPAMIDE
  7. CARVEDILOL. [Concomitant]
     Active Substance: CARVEDILOL
     Dosage: 25 MILLIGRAM DAILY;
  8. DABIGATRAN [Concomitant]
     Active Substance: DABIGATRAN
     Dosage: 220 MILLIGRAM DAILY;

REACTIONS (5)
  - Rash maculo-papular [Unknown]
  - Stevens-Johnson syndrome [Unknown]
  - Conjunctival hyperaemia [Unknown]
  - Pyrexia [Unknown]
  - Hypotension [Unknown]
